FAERS Safety Report 10402057 (Version 1)
Quarter: 2014Q3

REPORT INFORMATION
  Report Type: Spontaneous
  Country: IN (occurrence: IN)
  Receive Date: 20140822
  Receipt Date: 20140822
  Transmission Date: 20150326
  Serious: Yes (Other)
  Sender: FDA-Public Use
  Company Number: IN-MYLAN-2014M1002184

PATIENT

DRUGS (3)
  1. ALPRAZOLAM. [Suspect]
     Active Substance: ALPRAZOLAM
     Route: 050
  2. ALPRAZOLAM. [Suspect]
     Active Substance: ALPRAZOLAM
     Indication: INSOMNIA
     Dosage: 20 TABLETS OF ALPRAZOLAM 0.5 MG EACH PER DAY
     Route: 065
  3. ALPRAZOLAM. [Suspect]
     Active Substance: ALPRAZOLAM
     Indication: HEAD DISCOMFORT
     Route: 050

REACTIONS (3)
  - Drug dependence [Recovering/Resolving]
  - Drug withdrawal syndrome [Recovering/Resolving]
  - Intentional product misuse [Recovering/Resolving]
